FAERS Safety Report 17460793 (Version 1)
Quarter: 2020Q1

REPORT INFORMATION
  Report Type: Spontaneous
  Country: US (occurrence: US)
  Receive Date: 20200225
  Receipt Date: 20200225
  Transmission Date: 20200409
  Serious: Yes (Life-Threatening, Hospitalization)
  Sender: FDA-Public Use
  Company Number: None

PATIENT
  Age: 55 Year
  Sex: Male
  Weight: 116.8 kg

DRUGS (1)
  1. IOPAMIDOL 370 [Suspect]
     Active Substance: IOPAMIDOL
     Dosage: ?          OTHER FREQUENCY:ONCE;?
     Route: 040
     Dates: start: 20200204, end: 20200204

REACTIONS (2)
  - Unresponsive to stimuli [None]
  - Cough [None]

NARRATIVE: CASE EVENT DATE: 20200204
